FAERS Safety Report 7418450 (Version 2)
Quarter: 2017Q4

REPORT INFORMATION
  Report Type: Spontaneous
  Country: TR (occurrence: TR)
  Receive Date: 20100614
  Receipt Date: 20171205
  Transmission Date: 20180321
  Serious: Yes (Death, Other)
  Sender: FDA-Public Use
  Company Number: TR-ROCHE-707954

PATIENT
  Age: 41 Year
  Sex: Male

DRUGS (5)
  1. GANCICLOVIR. [Suspect]
     Active Substance: GANCICLOVIR
     Dosage: MAINTENANCE TREATMENT ON WEEKDAYS ONLY
     Route: 042
  2. MYCOPHENOLATE MOFETIL. [Suspect]
     Active Substance: MYCOPHENOLATE MOFETIL
     Indication: GRAFT VERSUS HOST DISEASE
     Dosage: DOSE: 2 X 1000 MG
     Route: 065
  3. GANCICLOVIR. [Suspect]
     Active Substance: GANCICLOVIR
     Indication: CYTOMEGALOVIRUS INFECTION
     Dosage: INDUCTION TREATMENT FOR 2 WEEKS
     Route: 042
  4. GANCICLOVIR. [Suspect]
     Active Substance: GANCICLOVIR
     Dosage: UNTIL DAY 130
     Route: 042
  5. FOSCARNET [Concomitant]
     Active Substance: FOSCARNET

REACTIONS (5)
  - Cytomegalovirus chorioretinitis [Unknown]
  - Death [Fatal]
  - Drug resistance [Unknown]
  - Aspergillus infection [Unknown]
  - Encephalitis cytomegalovirus [Unknown]
